FAERS Safety Report 25114754 (Version 1)
Quarter: 2025Q1

REPORT INFORMATION
  Report Type: Spontaneous
  Country: BE (occurrence: BE)
  Receive Date: 20250324
  Receipt Date: 20250324
  Transmission Date: 20250408
  Serious: Yes (Death, Hospitalization)
  Sender: Alora Pharma
  Company Number: BE-OSMOTICA PHARMACEUTICALS-2025ALO02105

PATIENT
  Age: 65 Year
  Sex: Female

DRUGS (2)
  1. VENLAFAXINE [Suspect]
     Active Substance: VENLAFAXINE HYDROCHLORIDE
     Route: 048
  2. LORAZEPAM [Concomitant]
     Active Substance: LORAZEPAM

REACTIONS (6)
  - Cardiogenic shock [Fatal]
  - Cardiac output decreased [Not Recovered/Not Resolved]
  - Cardiac failure acute [Not Recovered/Not Resolved]
  - Overdose [None]
  - Electrocardiogram QRS complex prolonged [Not Recovered/Not Resolved]
  - Coma [Not Recovered/Not Resolved]
